FAERS Safety Report 5364227-7 (Version None)
Quarter: 2007Q2

REPORT INFORMATION
  Report Type: 
  Country: None (occurrence: None)
  Receive Date: 20070620
  Receipt Date: 20070612
  Transmission Date: 20071010
  Serious: Yes (Hospitalization)
  Sender: FDA-Public Use
  Company Number: HQWYE583812JUN07

PATIENT
  Age: 49 Year
  Sex: Male

DRUGS (10)
  1. EFFEXOR [Suspect]
     Dosage: UNKNOWN
     Dates: end: 20070415
  2. CELEXA [Suspect]
     Indication: DEPRESSION
     Dosage: UNKNOWN
  3. AZITHROMYCIN [Concomitant]
     Dosage: UNKNOWN
  4. CAFFEINE [Suspect]
     Dosage: ABOUT 10 CUPS
     Dates: start: 20070417, end: 20070417
  5. TOPROL-XL [Concomitant]
     Dosage: UNKNOWN
  6. BUPROPION HYDROCHLORIDE [Suspect]
     Indication: DEPRESSION
     Route: 048
     Dates: start: 20070417
  7. BACLOFEN [Suspect]
     Dosage: UNKNOWN
     Dates: start: 20070417
  8. NICOTINE [Suspect]
     Dosage: TRIED TO SMOKE 2 PACKS IN ONE DAY
  9. PEGASYS [Suspect]
     Indication: HEPATITIS C
     Dosage: 45 MCG, FREQUENCY UNKNOWN
     Route: 058
     Dates: start: 20061015, end: 20070511
  10. HYDROCHLOROTHIAZIDE [Concomitant]
     Dosage: UNKNOWN

REACTIONS (14)
  - AGGRESSION [None]
  - AGITATION [None]
  - ANXIETY [None]
  - BLOOD PRESSURE INCREASED [None]
  - DELIRIUM [None]
  - DRUG WITHDRAWAL SYNDROME [None]
  - MENTAL DISORDER [None]
  - MENTAL STATUS CHANGES [None]
  - MOVEMENT DISORDER [None]
  - MUSCLE RIGIDITY [None]
  - RESPIRATORY DISTRESS [None]
  - RESTLESSNESS [None]
  - SINUS TACHYCARDIA [None]
  - TREMOR [None]
